FAERS Safety Report 17611633 (Version 24)
Quarter: 2025Q3

REPORT INFORMATION
  Report Type: Report from Study
  Country: US (occurrence: US)
  Receive Date: 20200401
  Receipt Date: 20250721
  Transmission Date: 20251020
  Serious: Yes (Other)
  Sender: TAKEDA
  Company Number: US-SHIRE-US202011711

PATIENT
  Age: 70 Year
  Sex: Female
  Weight: 71 kg

DRUGS (38)
  1. HUMAN IMMUNOGLOBULIN G [Suspect]
     Active Substance: HUMAN IMMUNOGLOBULIN G
     Indication: Immunodeficiency common variable
     Dosage: 10 GRAM, 1/WEEK
     Dates: start: 20120330
  2. HUMAN IMMUNOGLOBULIN G [Suspect]
     Active Substance: HUMAN IMMUNOGLOBULIN G
     Dosage: 10 GRAM, 1/WEEK
     Dates: start: 20120331
  3. CUVITRU [Suspect]
     Active Substance: HUMAN IMMUNOGLOBULIN G
     Indication: Immunodeficiency common variable
     Dosage: 20 GRAM, Q2WEEKS
  4. ACETAMINOPHEN [Concomitant]
     Active Substance: ACETAMINOPHEN
  5. OMEPRAZOLE [Concomitant]
     Active Substance: OMEPRAZOLE
  6. ZYRTEC [Concomitant]
     Active Substance: CETIRIZINE HYDROCHLORIDE
  7. SYSTANE (HYPROMELLOSE 2910 (4000 MPA.S)) [Concomitant]
     Active Substance: HYPROMELLOSE 2910 (4000 MPA.S)
  8. ONDANSETRON [Concomitant]
     Active Substance: ONDANSETRON
  9. WELLBUTRIN SR [Concomitant]
     Active Substance: BUPROPION HYDROCHLORIDE
  10. TRIMETHOPRIM [Concomitant]
     Active Substance: TRIMETHOPRIM
  11. ACETAMINOPHEN\HYDROCODONE [Concomitant]
     Active Substance: ACETAMINOPHEN\HYDROCODONE
  12. SINGULAIR [Concomitant]
     Active Substance: MONTELUKAST SODIUM
  13. BUTALBITAL, ASPIRIN, AND CAFFEINE [Concomitant]
     Active Substance: ASPIRIN\BUTALBITAL\CAFFEINE
  14. PROAIR HFA [Concomitant]
     Active Substance: ALBUTEROL SULFATE
  15. ACYCLOVIR [Concomitant]
     Active Substance: ACYCLOVIR
  16. VERAPAMIL [Concomitant]
     Active Substance: VERAPAMIL HYDROCHLORIDE
  17. TOPAMAX [Concomitant]
     Active Substance: TOPIRAMATE
  18. DIPHENHYDRAMINE HYDROCHLORIDE [Concomitant]
     Active Substance: DIPHENHYDRAMINE HYDROCHLORIDE
  19. Lmx [Concomitant]
  20. SYMBICORT [Concomitant]
     Active Substance: BUDESONIDE\FORMOTEROL FUMARATE DIHYDRATE
  21. LYRICA [Concomitant]
     Active Substance: PREGABALIN
  22. LEXAPRO [Concomitant]
     Active Substance: ESCITALOPRAM OXALATE
  23. LEVOTHYROXINE [Concomitant]
     Active Substance: LEVOTHYROXINE
  24. CYCLOBENZAPRINE [Concomitant]
     Active Substance: CYCLOBENZAPRINE
  25. ZADITOR [Concomitant]
     Active Substance: KETOTIFEN FUMARATE
  26. EPINEPHRINE [Concomitant]
     Active Substance: EPINEPHRINE
  27. TRAMADOL HCL [Concomitant]
     Active Substance: TRAMADOL HYDROCHLORIDE
  28. FIORINAL [Concomitant]
     Active Substance: ASPIRIN\BUTALBITAL\CAFFEINE
  29. CEFTRIAXONE [Concomitant]
     Active Substance: CEFTRIAXONE
  30. PREDNISONE [Concomitant]
     Active Substance: PREDNISONE
  31. FLONASE [Concomitant]
     Active Substance: FLUTICASONE PROPIONATE
  32. CRESTOR [Concomitant]
     Active Substance: ROSUVASTATIN CALCIUM
  33. LIDOCAINE [Concomitant]
     Active Substance: LIDOCAINE
  34. NORCO [Concomitant]
     Active Substance: ACETAMINOPHEN\HYDROCODONE BITARTRATE
  35. PROAIR HFA [Concomitant]
     Active Substance: ALBUTEROL SULFATE
  36. CYCLOBENZAPRINE HYDROCHLORIDE [Concomitant]
     Active Substance: CYCLOBENZAPRINE HYDROCHLORIDE
  37. Narco [Concomitant]
  38. SPIRIVA [Concomitant]
     Active Substance: TIOTROPIUM BROMIDE MONOHYDRATE

REACTIONS (30)
  - Kidney infection [Unknown]
  - Cellulitis [Unknown]
  - Respiratory syncytial virus infection [Unknown]
  - Bronchitis [Recovered/Resolved]
  - Sneezing [Unknown]
  - Allergic cough [Unknown]
  - Animal bite [Unknown]
  - Infected bite [Unknown]
  - Seasonal allergy [Unknown]
  - Thyroid disorder [Unknown]
  - Multiple allergies [Unknown]
  - Arthritis [Unknown]
  - Ear infection [Unknown]
  - Skin reaction [Unknown]
  - Illness [Unknown]
  - Allergy to plants [Unknown]
  - Product dose omission issue [Unknown]
  - Inappropriate schedule of product administration [Unknown]
  - Product use issue [Unknown]
  - Product dose omission in error [Unknown]
  - Viral infection [Unknown]
  - Sinusitis [Unknown]
  - Infusion site urticaria [Recovered/Resolved]
  - Asthma [Unknown]
  - Rhinorrhoea [Unknown]
  - Vertigo [Unknown]
  - Infusion site erythema [Recovered/Resolved]
  - Infusion site pruritus [Unknown]
  - Dizziness [Unknown]
  - Influenza [Unknown]

NARRATIVE: CASE EVENT DATE: 20210305
